FAERS Safety Report 4886816-6 (Version None)
Quarter: 2006Q1

REPORT INFORMATION
  Report Type: 
  Country: None (occurrence: None)
  Receive Date: 20060119
  Receipt Date: 20060119
  Transmission Date: 20060701
  Serious: Yes (Hospitalization, Other)
  Sender: FDA-Public Use
  Company Number: None

PATIENT
  Age: 85 Year
  Sex: Female
  Weight: 65.7716 kg

DRUGS (3)
  1. AVELOX [Suspect]
     Indication: BRONCHITIS
     Dosage: 1 TABLET ONCE DAILY ORAL
     Route: 048
  2. AVELOX [Suspect]
     Indication: PNEUMONIA
     Dosage: 1 TABLET ONCE DAILY ORAL
     Route: 048
  3. VERAPAMIL [Concomitant]

REACTIONS (4)
  - CHEST DISCOMFORT [None]
  - FATIGUE [None]
  - PULMONARY EMBOLISM [None]
  - SENSATION OF HEAVINESS [None]
